FAERS Safety Report 12934293 (Version 7)
Quarter: 2017Q3

REPORT INFORMATION
  Report Type: Report from Study
  Country: CO (occurrence: CO)
  Receive Date: 20161111
  Receipt Date: 20170822
  Transmission Date: 20171127
  Serious: Yes (Hospitalization)
  Sender: FDA-Public Use
  Company Number: PHHY2016CO151497

PATIENT
  Sex: Male
  Weight: 72 kg

DRUGS (5)
  1. BECLOMETASONE [Concomitant]
     Active Substance: BECLOMETHASONE DIPROPIONATE
     Indication: PRODUCT USED FOR UNKNOWN INDICATION
     Route: 065
  2. SALBUTAMOL [Suspect]
     Active Substance: ALBUTEROL
     Indication: PRODUCT USED FOR UNKNOWN INDICATION
     Dosage: UNK
     Route: 065
  3. IPRATROPIUM BROMIDE. [Suspect]
     Active Substance: IPRATROPIUM BROMIDE
     Indication: PRODUCT USED FOR UNKNOWN INDICATION
     Route: 065
  4. TASIGNA [Suspect]
     Active Substance: NILOTINIB
     Indication: CHRONIC MYELOID LEUKAEMIA
     Dosage: 2 DF, Q12H (EVERY 12 HOURS)
     Route: 048
  5. TASIGNA [Suspect]
     Active Substance: NILOTINIB
     Dosage: 200 MG, BID (2 CAPSULES OF 200MG EVERY 12 HOURS)
     Route: 048
     Dates: start: 20161122

REACTIONS (14)
  - Choking [Unknown]
  - Haemoglobin decreased [Unknown]
  - Lung infection [Unknown]
  - Fatigue [Not Recovered/Not Resolved]
  - Angina unstable [Unknown]
  - Pneumonia [Unknown]
  - Gastritis [Unknown]
  - Asphyxia [Not Recovered/Not Resolved]
  - Peripheral swelling [Unknown]
  - Serum ferritin increased [Unknown]
  - Pain [Unknown]
  - Infection [Unknown]
  - Gastric dilatation [Unknown]
  - Chronic obstructive pulmonary disease [Unknown]
